FAERS Safety Report 21793651 (Version 1)
Quarter: 2022Q4

REPORT INFORMATION
  Report Type: Spontaneous
  Country: GB (occurrence: GB)
  Receive Date: 20221229
  Receipt Date: 20221229
  Transmission Date: 20230112
  Serious: Yes (Hospitalization, Other)
  Sender: FDA-Public Use
  Company Number: GB-UCBSA-2022069185

PATIENT
  Age: 13 Year
  Sex: Male
  Weight: 29.4 kg

DRUGS (6)
  1. FENFLURAMINE HYDROCHLORIDE [Suspect]
     Active Substance: FENFLURAMINE HYDROCHLORIDE
     Indication: Severe myoclonic epilepsy of infancy
     Dosage: UNK
     Route: 048
     Dates: start: 2022
  2. FENFLURAMINE HYDROCHLORIDE [Suspect]
     Active Substance: FENFLURAMINE HYDROCHLORIDE
     Dosage: 2.7 MILLILITER, 2X/DAY (BID)
     Route: 048
     Dates: start: 20220819
  3. FENFLURAMINE HYDROCHLORIDE [Suspect]
     Active Substance: FENFLURAMINE HYDROCHLORIDE
     Dosage: 5.6 MILLILITER, 2X/DAY (BID)
     Route: 048
     Dates: start: 20220923
  4. VALPROATE SODIUM [Concomitant]
     Active Substance: VALPROATE SODIUM
     Indication: Seizure
     Dosage: 400 MILLIGRAM, UNK
     Route: 048
     Dates: start: 201509
  5. TOPIRAMATE [Concomitant]
     Active Substance: TOPIRAMATE
     Indication: Seizure
     Dosage: 225 MILLIGRAM, UNK
     Route: 048
     Dates: start: 201509
  6. PARALDEHYDE [Concomitant]
     Active Substance: PARALDEHYDE
     Indication: Product used for unknown indication

REACTIONS (4)
  - Generalised tonic-clonic seizure [Recovering/Resolving]
  - Weight decreased [Recovering/Resolving]
  - Peripheral coldness [Recovered/Resolved]
  - Decreased appetite [Unknown]

NARRATIVE: CASE EVENT DATE: 20220901
